FAERS Safety Report 9827420 (Version 1)
Quarter: 2014Q1

REPORT INFORMATION
  Report Type: Spontaneous
  Country: NL (occurrence: NL)
  Receive Date: 20140117
  Receipt Date: 20140117
  Transmission Date: 20141002
  Serious: Yes (Death, Other)
  Sender: FDA-Public Use
  Company Number: NL-ASTELLAS-2014US000462

PATIENT
  Age: 38 Year
  Sex: Male

DRUGS (3)
  1. AMBISOME [Suspect]
     Indication: CANDIDA INFECTION
     Dosage: 40 MG, UNK
     Route: 042
  2. AMBISOME [Suspect]
     Indication: ZYGOMYCOSIS
     Dosage: 80 MG/ UNK
     Route: 042
  3. FLUCYTOSINE [Concomitant]
     Indication: PRODUCT USED FOR UNKNOWN INDICATION
     Dosage: 2 G, UID/QD
     Route: 065

REACTIONS (1)
  - Drug ineffective [Fatal]
